FAERS Safety Report 7782572-2 (Version None)
Quarter: 2011Q3

REPORT INFORMATION
  Report Type: 
  Country: None (occurrence: None)
  Receive Date: 20110923
  Receipt Date: 20110914
  Transmission Date: 20111222
  Serious: Yes (Hospitalization, Other)
  Sender: FDA-Public Use
  Company Number: 2010SP056217

PATIENT
  Age: 39 Year
  Sex: Female
  Weight: 50.8029 kg

DRUGS (4)
  1. NUVARING [Suspect]
     Indication: UTERINE ENLARGEMENT
     Dates: start: 20061101, end: 20081001
  2. NUVARING [Suspect]
     Indication: CONTRACEPTION
     Dates: start: 20061101, end: 20081001
  3. NUVARING [Suspect]
     Indication: VAGINAL HAEMORRHAGE
     Dates: start: 20061101, end: 20081001
  4. SYNTHROID [Concomitant]

REACTIONS (10)
  - HAEMANGIOMA OF LIVER [None]
  - PARAESTHESIA [None]
  - ARACHNOID CYST [None]
  - MAY-THURNER SYNDROME [None]
  - PULMONARY EMBOLISM [None]
  - DEEP VEIN THROMBOSIS [None]
  - UTERINE LEIOMYOMA [None]
  - BLOOD POTASSIUM DECREASED [None]
  - HEADACHE [None]
  - HYPOAESTHESIA [None]
